FAERS Safety Report 12962646 (Version 2)
Quarter: 2016Q4

REPORT INFORMATION
  Report Type: Spontaneous
  Country: US (occurrence: US)
  Receive Date: 20161121
  Receipt Date: 20161214
  Transmission Date: 20170207
  Serious: Yes (Death, Hospitalization)
  Sender: FDA-Public Use
  Company Number: US-MAYNE PHARMA-2016MYN000862

PATIENT
  Age: 58 Year
  Sex: Male

DRUGS (5)
  1. DEPAKOTE [Concomitant]
     Active Substance: DIVALPROEX SODIUM
  2. CLOZAPINE. [Suspect]
     Active Substance: CLOZAPINE
     Indication: PRODUCT USED FOR UNKNOWN INDICATION
     Dosage: 500 MG, UNK
     Dates: start: 201503, end: 20150329
  3. LORAZEPAM. [Concomitant]
     Active Substance: LORAZEPAM
  4. CLOZAPINE. [Suspect]
     Active Substance: CLOZAPINE
     Dosage: 300 MG, UNK
     Dates: start: 20160210, end: 20161106
  5. CLOZAPINE. [Suspect]
     Active Substance: CLOZAPINE
     Dosage: 400 MG, UNK
     Dates: start: 20150329, end: 20160210

REACTIONS (3)
  - Pulmonary fibrosis [Fatal]
  - Pneumonia [Fatal]
  - Chronic obstructive pulmonary disease [Unknown]

NARRATIVE: CASE EVENT DATE: 201503
